FAERS Safety Report 15284342 (Version 1)
Quarter: 2018Q3

REPORT INFORMATION
  Report Type: Spontaneous
  Country: IT (occurrence: IT)
  Receive Date: 20180816
  Receipt Date: 20180816
  Transmission Date: 20181010
  Serious: Yes (Death, Other)
  Sender: FDA-Public Use
  Company Number: IT-CLINIGEN GROUP PLC/ CLINIGEN HEALTHCARE LTD-IT-CLGN-18-00315

PATIENT
  Age: 16 Year
  Sex: Female

DRUGS (5)
  1. MYCOPHENOLATE MOFETIL. [Concomitant]
     Active Substance: MYCOPHENOLATE MOFETIL
     Indication: IMMUNOSUPPRESSANT DRUG THERAPY
  2. FOSCARNET SODIUM. [Suspect]
     Active Substance: FOSCARNET SODIUM
     Indication: ENCEPHALITIS VIRAL
  3. GANCICLOVIR. [Suspect]
     Active Substance: GANCICLOVIR
     Indication: ENCEPHALITIS VIRAL
  4. FOSCARNET SODIUM. [Suspect]
     Active Substance: FOSCARNET SODIUM
     Indication: HUMAN HERPESVIRUS 6 INFECTION
  5. GANCICLOVIR. [Suspect]
     Active Substance: GANCICLOVIR
     Indication: HUMAN HERPESVIRUS 6 INFECTION

REACTIONS (5)
  - Renal failure [Unknown]
  - Urethritis [Unknown]
  - Renal tubular disorder [Unknown]
  - Off label use [Unknown]
  - Sepsis [Fatal]
